FAERS Safety Report 5225708-X (Version None)
Quarter: 2007Q1

REPORT INFORMATION
  Report Type: 
  Country: None (occurrence: None)
  Receive Date: 20070126
  Receipt Date: 20070115
  Transmission Date: 20070707
  Serious: Yes (Hospitalization)
  Sender: FDA-Public Use
  Company Number: HQWYE782418JAN07

PATIENT
  Age: 46 Year
  Sex: Female

DRUGS (3)
  1. EFFEXOR [Suspect]
     Dosage: OVERDOSE AMOUNT 4000 MG
     Dates: start: 20050301, end: 20050301
  2. LORMETAZEPAM (LORMETAZEPAM,) [Suspect]
     Dosage: OVERDOSE AMOUNT 18 TAB
     Dates: start: 20050301, end: 20050301
  3. OXAZEPAM [Suspect]
     Dosage: OVERDOSE AMOUNT 1000 MG
     Dates: start: 20050301, end: 20050301

REACTIONS (5)
  - HYPOTENSION [None]
  - MULTIPLE DRUG OVERDOSE [None]
  - PNEUMONIA ASPIRATION [None]
  - SOMNOLENCE [None]
  - TACHYCARDIA [None]
